FAERS Safety Report 7002831-0 (Version None)
Quarter: 2010Q3

REPORT INFORMATION
  Report Type: 
  Country: None (occurrence: None)
  Receive Date: 20100920
  Receipt Date: 20070613
  Transmission Date: 20110219
  Serious: Yes (Hospitalization)
  Sender: FDA-Public Use
  Company Number: US-ASTRAZENECA-2006UW21247

PATIENT
  Age: 36 Year
  Sex: Female
  Weight: 97.5 kg

DRUGS (10)
  1. SEROQUEL [Suspect]
     Indication: SCHIZOPHRENIA
     Route: 048
     Dates: start: 19990101, end: 20050101
  2. SEROQUEL [Suspect]
     Indication: DEPRESSION
     Route: 048
     Dates: start: 19990101, end: 20050101
  3. SEROQUEL [Suspect]
     Route: 048
     Dates: start: 20000628
  4. SEROQUEL [Suspect]
     Route: 048
     Dates: start: 20000628
  5. RISPERDAL [Concomitant]
  6. RISPERDAL [Concomitant]
     Dates: start: 19990224
  7. CELEXA [Concomitant]
     Dates: start: 20010116
  8. FLUOXETINE [Concomitant]
     Dates: start: 20021011
  9. HYOSCYAMINE [Concomitant]
     Route: 060
     Dates: start: 20030807
  10. LEXAPRO [Concomitant]
     Dates: start: 20031102

REACTIONS (1)
  - PANCREATITIS [None]
